FAERS Safety Report 4498744-9 (Version None)
Quarter: 2004Q4

REPORT INFORMATION
  Report Type: 
  Country: None (occurrence: None)
  Receive Date: 20041108
  Receipt Date: 20041026
  Transmission Date: 20050328
  Serious: Yes (Hospitalization, Other)
  Sender: FDA-Public Use
  Company Number: 2004079254

PATIENT
  Sex: Female

DRUGS (3)
  1. GEODON [Suspect]
     Indication: ILL-DEFINED DISORDER
  2. LITHIUM CARBONATE [Suspect]
     Indication: ILL-DEFINED DISORDER
  3. FLUCONAZOLE [Suspect]
     Indication: ILL-DEFINED DISORDER

REACTIONS (4)
  - BLOOD MAGNESIUM DECREASED [None]
  - BLOOD POTASSIUM DECREASED [None]
  - ELECTROCARDIOGRAM QT CORRECTED INTERVAL PROLONGED [None]
  - TORSADE DE POINTES [None]
